FAERS Safety Report 6241229-X (Version None)
Quarter: 2009Q2

REPORT INFORMATION
  Report Type: 
  Country: None (occurrence: None)
  Receive Date: 20090623
  Receipt Date: 20090612
  Transmission Date: 20091009
  Serious: Yes (Hospitalization)
  Sender: FDA-Public Use
  Company Number: FR-MERCK-0906FRA00055

PATIENT
  Age: 75 Year
  Sex: Female

DRUGS (8)
  1. VYTORIN [Suspect]
     Indication: HYPERCHOLESTEROLAEMIA
     Route: 048
     Dates: start: 20061110, end: 20081101
  2. VYTORIN [Suspect]
     Route: 048
     Dates: start: 20081205, end: 20090220
  3. METFORMIN PAMOATE [Concomitant]
     Indication: DIABETES MELLITUS
     Route: 048
  4. PANTOPRAZOLE SODIUM [Concomitant]
     Route: 048
  5. ASPIRIN LYSINE [Concomitant]
     Route: 048
  6. IRBESARTAN [Concomitant]
     Indication: ESSENTIAL HYPERTENSION
     Route: 048
  7. VERAPAMIL HYDROCHLORIDE [Concomitant]
     Route: 048
  8. NICORANDIL [Concomitant]
     Indication: CORONARY ARTERY DISEASE
     Route: 048

REACTIONS (2)
  - ISCHAEMIC STROKE [None]
  - POLYMYALGIA RHEUMATICA [None]
